FAERS Safety Report 7717253-4 (Version None)
Quarter: 2011Q3

REPORT INFORMATION
  Report Type: 
  Country: None (occurrence: None)
  Receive Date: 20110818
  Receipt Date: 20110706
  Transmission Date: 20111222
  Serious: No
  Sender: FDA-Public Use
  Company Number: 1000021999

PATIENT
  Age: 50 Year
  Sex: Female

DRUGS (5)
  1. LUNESTA (EZOPICLONE) (EZOPICLONE) [Concomitant]
  2. SYNTHROID (LEVOTHYROXINE SODIUM) (LEVOTHYROXINE SODIUM) [Concomitant]
  3. RISPERDAL [Concomitant]
  4. VIIBRYD [Suspect]
     Indication: DEPRESSION
     Dosage: 10 MG (10 MG, 1 IN 1 D), ORAL
     Route: 048
     Dates: start: 20110629, end: 20110705
  5. LAMICTAL [Concomitant]

REACTIONS (1)
  - FEELING ABNORMAL [None]
